FAERS Safety Report 6580686-6 (Version None)
Quarter: 2010Q1

REPORT INFORMATION
  Report Type: 
  Country: None (occurrence: None)
  Receive Date: 20100212
  Receipt Date: 20100202
  Transmission Date: 20100710
  Serious: Yes (Hospitalization)
  Sender: FDA-Public Use
  Company Number: CA-GENENTECH-297965

PATIENT
  Sex: Male
  Weight: 79.5 kg

DRUGS (1)
  1. XOLAIR [Suspect]
     Indication: ASTHMA
     Dosage: 375 MG, Q2W
     Route: 058
     Dates: start: 20050912

REACTIONS (5)
  - BLOOD PRESSURE INCREASED [None]
  - DYSPEPSIA [None]
  - GASTRIC DISORDER [None]
  - NASOPHARYNGITIS [None]
  - PYREXIA [None]
